FAERS Safety Report 12156937 (Version 5)
Quarter: 2017Q1

REPORT INFORMATION
  Report Type: Report from Study
  Country: CO (occurrence: CO)
  Receive Date: 20160307
  Receipt Date: 20170127
  Transmission Date: 20170428
  Serious: Yes (Life-Threatening, Hospitalization, Disabling)
  Sender: FDA-Public Use
  Company Number: DE-ACTELION-A-NJ2016-132560

PATIENT
  Age: 65 Year
  Sex: Male

DRUGS (1)
  1. VENTAVIS [Suspect]
     Active Substance: ILOPROST
     Indication: PULMONARY HYPERTENSION
     Dosage: 1 DF, 6/D
     Route: 055
     Dates: start: 20091230

REACTIONS (7)
  - Anaemia [Recovered/Resolved]
  - Intentional product misuse [Unknown]
  - Fatigue [Recovered/Resolved]
  - Pulmonary hypertension [Recovered/Resolved]
  - Haemoglobin decreased [Recovered/Resolved]
  - Discomfort [Recovering/Resolving]
  - Intestinal haemorrhage [Unknown]

NARRATIVE: CASE EVENT DATE: 201506
